FAERS Safety Report 19890426 (Version 1)
Quarter: 2021Q3

REPORT INFORMATION
  Report Type: Spontaneous
  Country: US (occurrence: US)
  Receive Date: 20210928
  Receipt Date: 20210928
  Transmission Date: 20211014
  Serious: No
  Sender: FDA-Public Use
  Company Number: US-ASTRAZENECA-2021A725108

PATIENT
  Sex: Female
  Weight: 72.6 kg

DRUGS (1)
  1. PULMICORT FLEXHALER [Suspect]
     Active Substance: BUDESONIDE
     Indication: ASTHMA
     Route: 055

REACTIONS (6)
  - Asthma [Unknown]
  - Nasopharyngitis [Unknown]
  - Chest discomfort [Unknown]
  - Device use issue [Unknown]
  - Product use issue [Unknown]
  - Device issue [Unknown]
